FAERS Safety Report 22539830 (Version 2)
Quarter: 2023Q2

REPORT INFORMATION
  Report Type: Report from Study
  Country: JP (occurrence: JP)
  Receive Date: 20230609
  Receipt Date: 20230615
  Transmission Date: 20230721
  Serious: Yes (Hospitalization)
  Sender: FDA-Public Use
  Company Number: JP-JNJFOC-20230609165

PATIENT
  Age: 17 Year
  Sex: Male

DRUGS (1)
  1. EPOPROSTENOL SODIUM [Suspect]
     Active Substance: EPOPROSTENOL SODIUM
     Indication: Pulmonary hypertension
     Dosage: EPOPROSTENOL SODIUM:1.593MG
     Route: 041

REACTIONS (2)
  - Device occlusion [Unknown]
  - Underdose [Unknown]

NARRATIVE: CASE EVENT DATE: 20230529
